FAERS Safety Report 25300695 (Version 1)
Quarter: 2025Q2

REPORT INFORMATION
  Report Type: Spontaneous
  Country: US (occurrence: None)
  Receive Date: 20250509
  Receipt Date: 20250509
  Transmission Date: 20250716
  Serious: No
  Sender: FDA-CTU
  Company Number: None

PATIENT
  Age: 47 Year
  Sex: Female
  Weight: 52.2 kg

DRUGS (7)
  1. KISQALI [Suspect]
     Active Substance: RIBOCICLIB SUCCINATE
     Indication: Breast cancer metastatic
     Dosage: 3 TABLETS DAILY ORAL
     Route: 048
     Dates: start: 20240912
  2. LETROZOLE [Suspect]
     Active Substance: LETROZOLE
  3. XGEVA [Concomitant]
     Active Substance: DENOSUMAB
  4. PRILOSEC [Concomitant]
     Active Substance: OMEPRAZOLE MAGNESIUM
  5. ONDANSETRON [Concomitant]
     Active Substance: ONDANSETRON
  6. LIFE EXTENSIONBONE RESTORE [Concomitant]
  7. ULTIMA REPLENISHER ELECROLYTE [Concomitant]

REACTIONS (1)
  - Visual impairment [None]

NARRATIVE: CASE EVENT DATE: 20241024
